FAERS Safety Report 6764942-4 (Version None)
Quarter: 2010Q2

REPORT INFORMATION
  Report Type: 
  Country: None (occurrence: None)
  Receive Date: 20100609
  Receipt Date: 20100401
  Transmission Date: 20101027
  Serious: No
  Sender: FDA-Public Use
  Company Number: 2010012795

PATIENT
  Age: 6 Year
  Sex: Female
  Weight: 20.4119 kg

DRUGS (1)
  1. CHILDREN'S ZYRTEC ALLERGY [Suspect]
     Indication: HYPERSENSITIVITY
     Dosage: 1 1/2 TSP 3 TIMES DAILY, ORAL
     Route: 048
     Dates: start: 20100401, end: 20100501

REACTIONS (4)
  - COUGH [None]
  - OFF LABEL USE [None]
  - OVERDOSE [None]
  - PRODUCT QUALITY ISSUE [None]
